FAERS Safety Report 25676880 (Version 1)
Quarter: 2025Q3

REPORT INFORMATION
  Report Type: Spontaneous
  Country: US (occurrence: US)
  Receive Date: 20250813
  Receipt Date: 20250813
  Transmission Date: 20251021
  Serious: No
  Sender: JOURNEY MEDICAL CORPORATION
  Company Number: US-JOURNEY MEDICAL CORPORATION-2025JNY00088

PATIENT
  Age: 78 Year
  Sex: Female
  Weight: 82.993 kg

DRUGS (6)
  1. QBREXZA [Suspect]
     Active Substance: GLYCOPYRRONIUM TOSYLATE
     Indication: Hyperhidrosis
     Dosage: 2.4 %, 1X/DAY (EVENING; ONE TIME USE ONLY)
     Route: 061
     Dates: start: 20250515, end: 20250515
  2. UNSPECIFIED INGREDIENT [Concomitant]
     Active Substance: UNSPECIFIED INGREDIENT
     Indication: Blood pressure abnormal
  3. UNSPECIFIED CHOLESTEROL MEDICINE [Concomitant]
  4. UNSPECIFIED ALLERGY PILL [Concomitant]
  5. VITAMIN D3 [Concomitant]
     Active Substance: CHOLECALCIFEROL
  6. LETROZOLE [Concomitant]
     Active Substance: LETROZOLE

REACTIONS (6)
  - Dry mouth [Recovering/Resolving]
  - Dysuria [Recovering/Resolving]
  - Constipation [Not Recovered/Not Resolved]
  - Throat tightness [Recovered/Resolved]
  - Secretion discharge [Not Recovered/Not Resolved]
  - Off label use [Recovered/Resolved]

NARRATIVE: CASE EVENT DATE: 20250515
